FAERS Safety Report 6979734-0 (Version None)
Quarter: 2010Q3

REPORT INFORMATION
  Report Type: 
  Country: None (occurrence: None)
  Receive Date: 20100914
  Receipt Date: 20100907
  Transmission Date: 20110219
  Serious: Yes (Hospitalization, Other)
  Sender: FDA-Public Use
  Company Number: PHHO2005DE11058

PATIENT
  Sex: Female
  Weight: 77 kg

DRUGS (14)
  1. CERTICAN [Suspect]
     Indication: RENAL TRANSPLANT
     Dosage: 2.5 MG, BID
     Route: 048
     Dates: start: 20050316, end: 20060208
  2. CERTICAN [Suspect]
     Dosage: UNK
  3. MYFORTIC [Suspect]
     Indication: RENAL TRANSPLANT
     Dosage: NOT REPORTED
     Route: 048
     Dates: start: 20050212, end: 20050708
  4. MYFORTIC [Suspect]
     Dosage: NOT REPORTED
     Route: 048
     Dates: start: 20050722, end: 20050731
  5. MYFORTIC [Suspect]
     Dosage: NOT REPORTED
     Dates: start: 20070101, end: 20070601
  6. PROGRAF [Concomitant]
     Indication: RENAL TRANSPLANT
     Dosage: UNK
     Dates: start: 20060301, end: 20070101
  7. STEROIDS NOS [Concomitant]
     Dosage: UNK
     Dates: start: 20060301, end: 20070101
  8. CELLCEPT [Concomitant]
     Indication: RENAL TRANSPLANT
     Dosage: 2 G, UNK
     Dates: start: 20010101, end: 20010201
  9. CELLCEPT [Concomitant]
     Dosage: 1 G, UNK
     Dates: start: 20010201, end: 20060201
  10. CALCIUM CARBONATE [Concomitant]
  11. LEVOTHYROXINE SODIUM [Concomitant]
  12. SIMVASTATIN [Concomitant]
  13. ASPIRIN [Concomitant]
  14. OMEP [Concomitant]

REACTIONS (8)
  - ALVEOLITIS [None]
  - COUGH [None]
  - ENDOCARDITIS [None]
  - PNEUMONIA [None]
  - PNEUMONITIS [None]
  - PULMONARY FIBROSIS [None]
  - PULMONARY SEPSIS [None]
  - SEPSIS [None]
